FAERS Safety Report 23912795 (Version 1)
Quarter: 2024Q2

REPORT INFORMATION
  Report Type: Spontaneous
  Country: FR (occurrence: FR)
  Receive Date: 20240529
  Receipt Date: 20240529
  Transmission Date: 20240716
  Serious: Yes (Hospitalization)
  Sender: FDA-Public Use
  Company Number: None

PATIENT
  Age: 84 Year
  Sex: Female
  Weight: 69.8 kg

DRUGS (8)
  1. CAPECITABINE [Suspect]
     Active Substance: CAPECITABINE
     Indication: Squamous cell carcinoma
     Dosage: 1500 MG MORNING AND EVENING (BID), FOR 14 DAYS, THEN STOPPED FOR 1 WEEK.?DAILY DOSE: 3000 MILLIGRAM
     Route: 048
     Dates: start: 202311, end: 20240325
  2. BISOPROLOL [Concomitant]
     Active Substance: BISOPROLOL\BISOPROLOL FUMARATE
     Dosage: DAILY DOSE: 1.25 MILLIGRAM
  3. RAMIPRIL [Concomitant]
     Active Substance: RAMIPRIL
     Dosage: DAILY DOSE: 2.5 MILLIGRAM
  4. HYDROCHLOROTHIAZIDE [Concomitant]
     Active Substance: HYDROCHLOROTHIAZIDE
     Dosage: DAILY DOSE: 25 MILLIGRAM
  5. METOCLOPRAMIDE [Concomitant]
     Active Substance: METOCLOPRAMIDE
     Dosage: TID?DAILY DOSE: 30 MILLIGRAM
  6. PENICILLIN V [Concomitant]
     Active Substance: PENICILLIN V
     Dosage: STRENGTH:1,000,000 IU, BID/ 1 TABLET MORNING AND EVENING?DAILY DOSE: 2 DOSAGE FORM
  7. FENTANYL [Concomitant]
     Active Substance: FENTANYL\FENTANYL CITRATE
  8. FOLIC ACID [Concomitant]
     Active Substance: FOLIC ACID
     Dosage: 1CP/2D, BID?DAILY DOSE: 2 DOSAGE FORM

REACTIONS (3)
  - Enteritis [Recovering/Resolving]
  - Intestinal obstruction [Recovering/Resolving]
  - Off label use [Unknown]

NARRATIVE: CASE EVENT DATE: 20231101
